FAERS Safety Report 5863482-4 (Version None)
Quarter: 2008Q3

REPORT INFORMATION
  Report Type: 
  Country: None (occurrence: None)
  Receive Date: 20080828
  Receipt Date: 20080819
  Transmission Date: 20090109
  Serious: Yes (Life-Threatening, Hospitalization, Other)
  Sender: FDA-Public Use
  Company Number: ES-ELI_LILLY_AND_COMPANY-ES200807003073

PATIENT
  Age: 42 Year
  Sex: Female

DRUGS (10)
  1. STRATTERA [Suspect]
     Dosage: 40MG/BREAKFAST, 60MG/DINNER
     Route: 048
     Dates: end: 20080607
  2. ACETAMINOPHEN [Concomitant]
     Dosage: UNK, UNKNOWN
     Route: 065
  3. PANTOPRAZOLE [Concomitant]
     Dosage: UNK, UNKNOWN
     Route: 065
  4. ALAPRYL [Concomitant]
     Dosage: 40 MG, DAILY (1/D)
     Route: 048
  5. DOBUPAL [Concomitant]
     Dosage: 75MG/BREAKFAST, 150MG/DINNER
     Route: 048
     Dates: end: 20080607
  6. PRIMPERAN /00041902/ [Concomitant]
     Dosage: UNK, UNKNOWN
     Route: 065
     Dates: start: 20080101
  7. DUPHALAC [Concomitant]
     Dosage: UNK, UNKNOWN
     Route: 065
  8. RELPAX [Concomitant]
     Indication: MIGRAINE
     Dosage: 40 MG, DAILY (1/D)
     Route: 048
     Dates: start: 20080606, end: 20080607
  9. VOLTAREN /00372301/ [Concomitant]
     Dosage: 100 MG, DAILY (1/D)
     Route: 048
     Dates: start: 20080101, end: 20080101
  10. DILTIAZEM HCL [Concomitant]
     Dosage: UNK, UNKNOWN
     Route: 065
     Dates: start: 20080101

REACTIONS (4)
  - ACUTE CORONARY SYNDROME [None]
  - BLOOD PRESSURE INCREASED [None]
  - HEADACHE [None]
  - MALAISE [None]
